FAERS Safety Report 4426084-2 (Version None)
Quarter: 2004Q3

REPORT INFORMATION
  Report Type: 
  Country: None (occurrence: None)
  Receive Date: 20040811
  Receipt Date: 20040730
  Transmission Date: 20050211
  Serious: Yes (Life-Threatening)
  Sender: FDA-Public Use
  Company Number: HQWYE890706JUL04

PATIENT
  Age: 76 Year
  Sex: Female

DRUGS (13)
  1. TAZOCIN (PIPERACILLIN /TAZOBACTAM, INJECTION) [Suspect]
     Indication: URINARY TRACT INFECTION
     Dosage: 5 GRAMS DAILY
     Route: 041
     Dates: start: 20040625, end: 20040630
  2. FLOMOX (CEFCAPENE PIVOXIL HYDROCHLORIDE) [Concomitant]
  3. SELEGILINE HYDROCHLORIDE (SELEGILINE HYDROCHLORIDE) [Concomitant]
  4. MADOPAR (BENSERAZIDE HYDROCHLORIDE/LEVODOPA) [Concomitant]
  5. ZOPICLONE (ZOPICLONE) [Concomitant]
  6. UFT [Suspect]
     Dosage: 1.5 GRAMS DAILY
     Route: 048
     Dates: start: 20010701, end: 20040704
  7. ALFAROL (ALFACALCIDOL) [Concomitant]
  8. NEUTROPIN (ORGAN LYSATE, STANDARDIZED) [Concomitant]
  9. TIZANIDINE (TIZANIDINE) [Concomitant]
  10. PRIMPERAN TAB [Concomitant]
  11. BERIZYM (ENZYMES NOS) [Concomitant]
  12. PODONIN S (LEVOGLUTAMIDE/ SODIUM GUALENATE) [Concomitant]
  13. MAGNESIUM OXIDE(MAGNESIUM OXIDE) [Concomitant]

REACTIONS (4)
  - CONDITION AGGRAVATED [None]
  - HAEMATURIA [None]
  - RED BLOOD CELL COUNT DECREASED [None]
  - THROMBOCYTOPENIA [None]
